FAERS Safety Report 5641070-2 (Version None)
Quarter: 2008Q1

REPORT INFORMATION
  Report Type: 
  Country: None (occurrence: None)
  Receive Date: 20080227
  Receipt Date: 20080222
  Transmission Date: 20080703
  Serious: Yes (Death, Life-Threatening)
  Sender: FDA-Public Use
  Company Number: DE-AVENTIS-200810523DE

PATIENT
  Age: 34 Year
  Sex: Female

DRUGS (23)
  1. CLEXANE [Suspect]
     Route: 058
     Dates: start: 20050125
  2. FOLSAN [Suspect]
     Dosage: DOSE: 1-0-0-0
     Dates: start: 20050211, end: 20050228
  3. FOLSAN [Suspect]
     Dosage: DOSE: NOT REPORTED
     Route: 048
     Dates: start: 20050309
  4. RISPERDAL [Suspect]
     Indication: DEPRESSION
     Dosage: DOSE: 1-0-0-1 2-0-0-2
     Route: 048
     Dates: start: 20050203
  5. CIPRAMIL                           /00582602/ [Suspect]
     Indication: DEPRESSION
     Dosage: DOSE: 1-0-0 2-0-0
     Route: 048
     Dates: start: 20050128
  6. PREDNISOLONE [Suspect]
     Indication: SYSTEMIC LUPUS ERYTHEMATOSUS
     Dosage: DOSE: 70 MG 50 MG 40 MG
     Route: 048
     Dates: start: 20050223, end: 20050309
  7. ENDOXAN [Suspect]
     Indication: SYSTEMIC LUPUS ERYTHEMATOSUS
     Dates: start: 20050202, end: 20050203
  8. MESNA [Suspect]
     Dosage: DOSE: 3X1 AMPOULE
     Route: 042
     Dates: start: 20050202, end: 20050203
  9. AUGMENTIN '125' [Concomitant]
     Dosage: DOSE: 1-1-1-0
     Route: 048
     Dates: start: 20050125, end: 20050216
  10. VITAMIN B-12 [Concomitant]
     Dosage: DOSE: ONE AMPOULE
     Route: 030
     Dates: start: 20050210, end: 20050219
  11. DECORTIN [Concomitant]
     Indication: SYSTEMIC LUPUS ERYTHEMATOSUS
     Dosage: DOSE: 70 MG 60 MG 50 MG
     Route: 048
     Dates: start: 20050208, end: 20050223
  12. ESPUMISAN                          /00159501/ [Concomitant]
     Dosage: DOSE: 2-2-2-0
     Route: 048
     Dates: start: 20050208, end: 20050223
  13. FORTIMEL [Concomitant]
     Indication: ENTERAL NUTRITION
     Dosage: DOSE: 1-1-1-1
     Route: 048
     Dates: start: 20050210, end: 20050223
  14. PANTOZOL                           /01263202/ [Concomitant]
     Dosage: DOSE: 0-0-1 1-0-0
     Route: 048
     Dates: start: 20050115
  15. CALCIMAGON-D3 [Concomitant]
     Dosage: DOSE: 1-1-0-0
     Route: 048
     Dates: start: 20050208
  16. DIPIPERON [Concomitant]
     Indication: AGITATION
     Route: 048
     Dates: start: 20050209, end: 20050223
  17. DIPIPERON [Concomitant]
     Route: 048
     Dates: start: 20050309
  18. FENISTIL [Concomitant]
     Indication: PRURITUS
     Dosage: DOSE: 4X20 4X15
     Route: 048
     Dates: start: 20050214, end: 20050223
  19. FENISTIL [Concomitant]
     Dosage: DOSE: 4X20 4X15
     Route: 048
     Dates: start: 20050308, end: 20050309
  20. IMUREK                             /00001501/ [Concomitant]
     Indication: SYSTEMIC LUPUS ERYTHEMATOSUS
     Dosage: DOSE: 1-0-0.5-0
     Route: 048
     Dates: start: 20050215, end: 20050221
  21. KALINOR-BRAUSETABLETTEN [Concomitant]
     Dosage: DOSE: 1-0-1-0
     Route: 048
     Dates: start: 20050223, end: 20050302
  22. DIPIDOLOR [Concomitant]
     Indication: PAIN
     Dosage: DOSE: ONE AMPOULE
     Route: 058
     Dates: start: 20050225, end: 20050225
  23. GONADOTROPHIN RELEASING HORMONE ANALOGUES [Concomitant]
     Dosage: DOSE: ONE AMPOULE
     Route: 058
     Dates: start: 20050306, end: 20050306

REACTIONS (7)
  - BLISTER [None]
  - CONJUNCTIVITIS [None]
  - ERYTHEMA [None]
  - MUCOSAL EROSION [None]
  - OCULAR HYPERAEMIA [None]
  - SKIN DISORDER [None]
  - TOXIC EPIDERMAL NECROLYSIS [None]
